FAERS Safety Report 4522999-5 (Version None)
Quarter: 2004Q4

REPORT INFORMATION
  Report Type: 
  Country: None (occurrence: None)
  Receive Date: 20041208
  Receipt Date: 20041129
  Transmission Date: 20050328
  Serious: Yes (Other)
  Sender: FDA-Public Use
  Company Number: 2004099433

PATIENT
  Age: 46 Year
  Sex: Male

DRUGS (7)
  1. LIPITOR [Suspect]
     Indication: ILL-DEFINED DISORDER
     Dosage: 40 MG
     Dates: start: 20010214
  2. ASPIRIN [Concomitant]
  3. CLOPIDOGREL BISULFATE [Concomitant]
  4. RAMIPRIL [Concomitant]
  5. METOPROLOL TARTRATE [Concomitant]
  6. VENLAFAXINE HCL [Concomitant]
  7. ALL OTHER THERAPEUTIC PRODUCTS [Concomitant]

REACTIONS (6)
  - AMNESIA [None]
  - ANGINA PECTORIS [None]
  - DEPRESSION [None]
  - EMOTIONAL DISTRESS [None]
  - FATIGUE [None]
  - IMPAIRED WORK ABILITY [None]
